FAERS Safety Report 5910600-5 (Version None)
Quarter: 2008Q4

REPORT INFORMATION
  Report Type: 
  Country: None (occurrence: None)
  Receive Date: 20081007
  Receipt Date: 20081003
  Transmission Date: 20090506
  Serious: Yes (Life-Threatening)
  Sender: FDA-Public Use
  Company Number: JP-JNJFOC-20081000962

PATIENT
  Sex: Female

DRUGS (10)
  1. CRAVIT [Suspect]
     Indication: CYSTITIS
     Route: 048
  2. WARFARIN SODIUM [Suspect]
     Indication: ATRIAL FIBRILLATION
     Route: 048
  3. THYRADIN [Concomitant]
     Indication: HYPOTHYROIDISM
     Route: 048
  4. LANSOPRAZOLE [Concomitant]
     Indication: REFLUX OESOPHAGITIS
     Route: 048
  5. VESICARE [Concomitant]
     Indication: HYPERTONIC BLADDER
     Route: 048
  6. LANIRAPID [Concomitant]
     Indication: CARDIAC FAILURE CONGESTIVE
     Route: 048
  7. LASIX [Concomitant]
     Indication: CARDIAC FAILURE CONGESTIVE
     Route: 048
  8. ALDACTONE [Concomitant]
     Indication: CARDIAC FAILURE CONGESTIVE
     Route: 048
  9. ZYLORIC [Concomitant]
     Indication: HYPERURICAEMIA
     Route: 048
  10. DOGMATYL [Concomitant]
     Indication: GASTRIC ULCER
     Route: 048

REACTIONS (3)
  - ANAEMIA [None]
  - HAEMORRHAGIC DIATHESIS [None]
  - SHOCK [None]
